FAERS Safety Report 17009706 (Version 3)
Quarter: 2019Q4

REPORT INFORMATION
  Report Type: Spontaneous
  Country: ES (occurrence: ES)
  Receive Date: 20191108
  Receipt Date: 20191231
  Transmission Date: 20200122
  Serious: Yes (Other)
  Sender: FDA-Public Use
  Company Number: ES-PFIZER INC-2019473881

PATIENT
  Sex: Female
  Weight: 16 kg

DRUGS (5)
  1. DESMOPRESSIN [Concomitant]
     Active Substance: DESMOPRESSIN
     Dosage: 0.6 UG, 2X/DAY (EVERY 12 HOURS)
  2. LEVOTHYROXINE. [Concomitant]
     Active Substance: LEVOTHYROXINE
     Dosage: 62.5 UG, 1X/DAY (EVERY 24 HOURS)
     Route: 048
  3. DESMOPRESSIN [Concomitant]
     Active Substance: DESMOPRESSIN
     Dosage: 5 UG, 2X/DAY (EVERY 12 HOURS IF DIURESIS WAS GREATER THAN 50 ML/HOUR)
     Route: 045
  4. LEVETIRACETAM. [Suspect]
     Active Substance: LEVETIRACETAM
     Dosage: 20 MG/KG, DAILY (IN TWO DIVIDED DOSES)
     Route: 048
  5. HYDROCORTISONE. [Concomitant]
     Active Substance: HYDROCORTISONE
     Dosage: 2.5 MG, 3X/DAY (EVERY 8 HOURS)
     Route: 048

REACTIONS (3)
  - Oliguria [Unknown]
  - Therapeutic response unexpected [Unknown]
  - Epilepsy [Unknown]
